FAERS Safety Report 25332160 (Version 1)
Quarter: 2025Q2

REPORT INFORMATION
  Report Type: Spontaneous
  Country: CN (occurrence: CN)
  Receive Date: 20250519
  Receipt Date: 20250519
  Transmission Date: 20250716
  Serious: Yes (Hospitalization, Other)
  Sender: GE HEALTHCARE
  Company Number: None

PATIENT
  Age: 82 Year
  Sex: Male
  Weight: 70 kg

DRUGS (6)
  1. VISIPAQUE [Suspect]
     Active Substance: IODIXANOL
     Indication: Angiogram
     Route: 013
     Dates: start: 20250429
  2. VISIPAQUE [Suspect]
     Active Substance: IODIXANOL
     Indication: Percutaneous coronary intervention
  3. VISIPAQUE [Suspect]
     Active Substance: IODIXANOL
     Indication: Angiocardiogram
  4. DESLORATADINE [Concomitant]
     Active Substance: DESLORATADINE
     Indication: Eczema
     Route: 048
  5. UREA [Concomitant]
     Active Substance: UREA
     Indication: Eczema
     Route: 061
  6. DESONIDE [Concomitant]
     Active Substance: DESONIDE
     Indication: Eczema
     Route: 061

REACTIONS (4)
  - Skin exfoliation [Recovering/Resolving]
  - Rash [Recovering/Resolving]
  - Erythema [Recovering/Resolving]
  - Pruritus [Recovering/Resolving]

NARRATIVE: CASE EVENT DATE: 20250501
